FAERS Safety Report 16287610 (Version 3)
Quarter: 2019Q3

REPORT INFORMATION
  Report Type: Spontaneous
  Country: TJ (occurrence: TJ)
  Receive Date: 20190508
  Receipt Date: 20190705
  Transmission Date: 20191004
  Serious: Yes (Death, Hospitalization)
  Sender: FDA-Public Use
  Company Number: TJ-JNJFOC-20190503525

PATIENT
  Age: 67 Year
  Sex: Male
  Weight: 71 kg

DRUGS (20)
  1. OMEPRAZOLE. [Concomitant]
     Active Substance: OMEPRAZOLE
     Route: 048
     Dates: start: 20170713
  2. CYCLOSERIN [Suspect]
     Active Substance: CYCLOSERINE
     Indication: TUBERCULOSIS
     Route: 048
     Dates: start: 20170713, end: 20190414
  3. TMC207 [Suspect]
     Active Substance: BEDAQUILINE
     Indication: TUBERCULOSIS
     Route: 048
     Dates: start: 20170713, end: 20170726
  4. GLUKOFAG [Concomitant]
     Route: 048
     Dates: start: 2010, end: 20190414
  5. RIBOXINE [Concomitant]
     Route: 048
     Dates: start: 20170713, end: 20170813
  6. ASPIRIN CARDIO [Concomitant]
     Active Substance: ASPIRIN
     Route: 048
     Dates: start: 20170713, end: 20190414
  7. LOSARTAN. [Concomitant]
     Active Substance: LOSARTAN
     Route: 048
     Dates: start: 20170713, end: 20190414
  8. BISOPROLOL [Concomitant]
     Active Substance: BISOPROLOL
     Route: 048
     Dates: start: 20170713, end: 20190414
  9. CLOFAZIMINE [Suspect]
     Active Substance: CLOFAZIMINE
     Indication: TUBERCULOSIS
     Route: 048
     Dates: start: 20170713, end: 20190414
  10. LEVOFLOXACIN. [Suspect]
     Active Substance: LEVOFLOXACIN
     Indication: TUBERCULOSIS
     Route: 048
     Dates: start: 20170713, end: 20190414
  11. ROBAXIN [Concomitant]
     Active Substance: METHOCARBAMOL
     Dosage: 10 ML
     Route: 030
     Dates: start: 20170713, end: 20170803
  12. LINEZOLID. [Suspect]
     Active Substance: LINEZOLID
     Indication: TUBERCULOSIS
     Route: 048
     Dates: start: 20170713, end: 20190414
  13. PYRAZINAMIDE. [Suspect]
     Active Substance: PYRAZINAMIDE
     Indication: TUBERCULOSIS
     Route: 048
     Dates: start: 20170713, end: 20190414
  14. PROTIONAMIDE [Suspect]
     Active Substance: PROTIONAMIDE
     Indication: TUBERCULOSIS
     Route: 048
     Dates: start: 20170713, end: 20190414
  15. AMARYL [Concomitant]
     Active Substance: GLIMEPIRIDE
     Route: 048
     Dates: start: 2010, end: 20190414
  16. CARDIOVIT PLUS [Concomitant]
     Dosage: 2 ML
     Route: 030
     Dates: start: 20170713, end: 20170716
  17. TMC207 [Suspect]
     Active Substance: BEDAQUILINE
     Route: 048
     Dates: start: 20170728, end: 20180116
  18. CARDIOMAGNYL [Concomitant]
     Active Substance: ASPIRIN\MAGNESIUM HYDROXIDE
     Route: 048
     Dates: start: 20170713, end: 20170803
  19. PANANGIN [Concomitant]
     Active Substance: MAGNESIUM ASPARTATE\POTASSIUM ASPARTATE
     Route: 048
     Dates: start: 20170713, end: 20170803
  20. PYRIDOXINE HYDROCHLORIDE. [Concomitant]
     Active Substance: PYRIDOXINE HYDROCHLORIDE
     Route: 048
     Dates: start: 20170713, end: 20190414

REACTIONS (1)
  - Diabetic hyperglycaemic coma [Fatal]
